FAERS Safety Report 8325284-9 (Version None)
Quarter: 2012Q2

REPORT INFORMATION
  Report Type: 
  Country: None (occurrence: None)
  Receive Date: 20120501
  Receipt Date: 20120423
  Transmission Date: 20120825
  Serious: Yes (Other)
  Sender: FDA-Public Use
  Company Number: US-ASTRAZENECA-2012SE26343

PATIENT
  Sex: Male
  Weight: 105.2 kg

DRUGS (8)
  1. SEROQUEL XR [Suspect]
     Indication: DEPRESSION
     Route: 048
  2. SINGULAIR [Concomitant]
     Indication: ASTHMA
  3. SEROQUEL XR [Suspect]
     Indication: ANXIETY
     Route: 048
  4. ALPRAZOLAM [Concomitant]
     Indication: ANXIETY
  5. ADVAIR DISKUS 100/50 [Concomitant]
     Indication: ASTHMA
     Dosage: 500/50 1 PUFF BID
  6. NEXIUM [Suspect]
     Indication: GASTROOESOPHAGEAL REFLUX DISEASE
     Route: 048
  7. PROZAC [Concomitant]
     Indication: HYPERTENSION
  8. LISINOPRIL [Concomitant]
     Indication: HYPERTENSION

REACTIONS (6)
  - MOOD SWINGS [None]
  - HAEMORRHOIDS [None]
  - SUICIDAL IDEATION [None]
  - INTENTIONAL DRUG MISUSE [None]
  - DEPRESSION [None]
  - ASTHMA [None]
